FAERS Safety Report 7326857-2 (Version None)
Quarter: 2011Q1

REPORT INFORMATION
  Report Type: 
  Country: None (occurrence: None)
  Receive Date: 20110302
  Receipt Date: 20091208
  Transmission Date: 20110831
  Serious: No
  Sender: FDA-Public Use
  Company Number: US-PFIZER INC-2009307678

PATIENT
  Sex: Male

DRUGS (4)
  1. FAMOTIDINE [Suspect]
     Dosage: UNK
  2. LAMICTAL [Concomitant]
     Dosage: UNK
  3. DILANTIN-125 [Suspect]
     Dosage: 100 MG, 4X/DAY
  4. DILANTIN-125 [Suspect]
     Dosage: 100 MG, 5X/DAY

REACTIONS (5)
  - ACCIDENT [None]
  - MALAISE [None]
  - NAUSEA [None]
  - PERSONALITY CHANGE [None]
  - DRUG LEVEL [None]
